FAERS Safety Report 14194979 (Version 2)
Quarter: 2017Q4

REPORT INFORMATION
  Report Type: Spontaneous
  Country: TW (occurrence: TW)
  Receive Date: 20171116
  Receipt Date: 20171127
  Transmission Date: 20180321
  Serious: Yes (Hospitalization, Other)
  Sender: FDA-Public Use
  Company Number: TW-BRISTOL-MYERS SQUIBB COMPANY-BMS-2017-102932

PATIENT
  Age: 56 Year
  Sex: Male
  Weight: 59.7 kg

DRUGS (1)
  1. OPDIVO [Suspect]
     Active Substance: NIVOLUMAB
     Indication: OROPHARYNGEAL CANCER
     Dosage: 180 MG, Q2WK
     Route: 042
     Dates: start: 20171017

REACTIONS (5)
  - Decreased appetite [Unknown]
  - Chest pain [Unknown]
  - Dysphagia [Unknown]
  - Oesophageal stenosis [Unknown]
  - Lung neoplasm [Unknown]

NARRATIVE: CASE EVENT DATE: 20171101
